FAERS Safety Report 16740496 (Version 9)
Quarter: 2022Q3

REPORT INFORMATION
  Report Type: Spontaneous
  Country: US (occurrence: US)
  Receive Date: 20190826
  Receipt Date: 20220923
  Transmission Date: 20221027
  Serious: Yes (Other)
  Sender: FDA-Public Use
  Company Number: US-PFIZER INC-2018258632

PATIENT
  Age: 73 Year
  Sex: Male
  Weight: 97.52 kg

DRUGS (5)
  1. BOSULIF [Suspect]
     Active Substance: BOSUTINIB MONOHYDRATE
     Indication: Chronic myeloid leukaemia
     Dosage: 100 MG, 1X/DAY TAKE 1 TABLET BY MOUTH DAILY)
     Route: 048
     Dates: start: 2016
  2. BOSULIF [Suspect]
     Active Substance: BOSUTINIB MONOHYDRATE
     Dosage: 400 MG
  3. BOSULIF [Suspect]
     Active Substance: BOSUTINIB MONOHYDRATE
     Dosage: 200 MG, 2X/DAY (2 TABLETS OF 100MG)
     Route: 048
  4. BOSULIF [Suspect]
     Active Substance: BOSUTINIB MONOHYDRATE
     Dosage: 200 MG, 1X/DAY [SWALLOW WITH WATER OR FOOD]
     Dates: start: 2019, end: 2020
  5. BOSULIF [Suspect]
     Active Substance: BOSUTINIB MONOHYDRATE
     Dosage: 100 MG, DAILY
     Route: 048

REACTIONS (8)
  - Blindness [Not Recovered/Not Resolved]
  - Cardiac valve disease [Unknown]
  - Aortic disorder [Not Recovered/Not Resolved]
  - Diarrhoea [Unknown]
  - Depression [Unknown]
  - Pain in extremity [Not Recovered/Not Resolved]
  - Illness [Not Recovered/Not Resolved]
  - Off label use [Unknown]

NARRATIVE: CASE EVENT DATE: 20200101
